FAERS Safety Report 8581725-3 (Version None)
Quarter: 2012Q3

REPORT INFORMATION
  Report Type: 
  Country: None (occurrence: None)
  Receive Date: 20120809
  Receipt Date: 20120731
  Transmission Date: 20120928
  Serious: Yes (Other)
  Sender: FDA-Public Use
  Company Number: TN-PFIZER INC-2012191730

PATIENT
  Age: 51 Year
  Sex: Male

DRUGS (7)
  1. CORDARONE [Suspect]
     Dosage: UNK
     Dates: start: 20080901, end: 20090101
  2. CORDARONE [Suspect]
     Indication: ATRIAL FIBRILLATION
     Dosage: 200 MG, DAILY
     Dates: start: 19820101, end: 20070101
  3. DIGOXIN [Suspect]
     Indication: HYPOTHYROIDISM
     Dosage: 0.25 MG, DAILY
     Dates: start: 20070101, end: 20080901
  4. SINTROM [Concomitant]
     Dosage: 4 MG, DAILY
     Dates: start: 19820101
  5. LEVOTHYROXINE SODIUM [Concomitant]
     Indication: HYPOTHYROIDISM
     Dosage: 100 MG, DAILY
     Dates: start: 20070101
  6. DIGOXIN [Suspect]
     Dosage: UNK
     Dates: start: 20090101, end: 20091112
  7. LASIX [Concomitant]
     Dosage: 40 MG, DAILY
     Dates: start: 19820101

REACTIONS (5)
  - HYPOTHYROIDISM [None]
  - OESTRADIOL INCREASED [None]
  - GYNAECOMASTIA [None]
  - BLOOD LUTEINISING HORMONE INCREASED [None]
  - BLOOD FOLLICLE STIMULATING HORMONE INCREASED [None]
